FAERS Safety Report 11520858 (Version 1)
Quarter: 2015Q3

REPORT INFORMATION
  Report Type: Spontaneous
  Country: US (occurrence: US)
  Receive Date: 20150918
  Receipt Date: 20150918
  Transmission Date: 20151125
  Serious: No
  Sender: FDA-Public Use
  Company Number: US-ROCHE-654048

PATIENT
  Age: 55 Year
  Sex: Female

DRUGS (2)
  1. PEGASYS [Suspect]
     Active Substance: PEGINTERFERON ALFA-2A
     Indication: HEPATITIS C
     Dosage: FORM: PRE-FILLED SYRINGE
     Route: 065
  2. RIBAVIRIN. [Suspect]
     Active Substance: RIBAVIRIN
     Indication: HEPATITIS C
     Dosage: DIVIDED DOSES
     Route: 048

REACTIONS (9)
  - Thirst [Unknown]
  - Dysarthria [Unknown]
  - General physical health deterioration [Unknown]
  - Back pain [Unknown]
  - Sinusitis [Unknown]
  - Pain [Unknown]
  - Headache [Unknown]
  - Hypertension [Unknown]
  - Renal disorder [Unknown]

NARRATIVE: CASE EVENT DATE: 20090829
